FAERS Safety Report 8340549 (Version 2)
Quarter: 2012Q4

REPORT INFORMATION
  Report Type: 
  Country: US (occurrence: US)
  Receive Date: 20120117
  Receipt Date: 20120914
  Transmission Date: 20130627
  Serious: Yes (Death)
  Sender: FDA-Public Use
  Company Number: US-ROCHE-1029041

PATIENT
  Sex: Female

DRUGS (5)
  1. AVASTIN [Suspect]
     Indication: ENDOMETRIAL CANCER RECURRENT
     Route: 042
     Dates: start: 20090115
  2. ADRIAMYCIN [Concomitant]
     Route: 065
     Dates: start: 20090105, end: 20090205
  3. ADRIAMYCIN [Concomitant]
     Route: 065
     Dates: start: 20090226, end: 20090319
  4. ADRIAMYCIN [Concomitant]
     Route: 065
     Dates: start: 20090406, end: 20090429
  5. ADRIAMYCIN [Concomitant]
     Route: 065
     Dates: start: 20090701

REACTIONS (2)
  - Disease progression [Fatal]
  - Endometrial cancer metastatic [Fatal]
